FAERS Safety Report 6316390-9 (Version None)
Quarter: 2009Q3

REPORT INFORMATION
  Report Type: 
  Country: None (occurrence: None)
  Receive Date: 20090820
  Receipt Date: 20090811
  Transmission Date: 20100115
  Serious: Yes (Death)
  Sender: FDA-Public Use
  Company Number: B0585783A

PATIENT
  Sex: Female
  Weight: 35 kg

DRUGS (2)
  1. TYKERB [Suspect]
     Indication: BREAST CANCER
     Dosage: 1250MG PER DAY
     Route: 048
     Dates: start: 20090703, end: 20090705
  2. XELODA [Concomitant]
     Dosage: 1200MG PER DAY
     Route: 048
     Dates: start: 20090703, end: 20090705

REACTIONS (5)
  - DIARRHOEA [None]
  - HEPATIC FAILURE [None]
  - HEPATIC FUNCTION ABNORMAL [None]
  - HYPERAMMONAEMIA [None]
  - RENAL FAILURE [None]
